FAERS Safety Report 23783580 (Version 2)
Quarter: 2024Q2

REPORT INFORMATION
  Report Type: Other
  Country: CH (occurrence: CH)
  Receive Date: 20240425
  Receipt Date: 20240429
  Transmission Date: 20240716
  Serious: Yes (Other)
  Sender: FDA-Public Use
  Company Number: CH-ASTELLAS-2024US012039

PATIENT
  Age: 76 Year
  Sex: Female

DRUGS (4)
  1. MIRABEGRON [Interacting]
     Active Substance: MIRABEGRON
     Indication: Bladder dysfunction
     Dosage: UNK UNK, UNKNOWN FREQ.
     Route: 065
     Dates: end: 20180508
  2. MIRABEGRON [Interacting]
     Active Substance: MIRABEGRON
     Dosage: 50 MG, ONCE DAILY ((1-0-0-0) AS OF 14-MAR-2024)
     Route: 065
  3. SEROPRAM (CITALOPRAM HYDROCHLORIDE) [Interacting]
     Active Substance: CITALOPRAM HYDROCHLORIDE
     Indication: Anxiety
     Dosage: UNK UNK, UNKNOWN FREQ.
     Route: 065
     Dates: end: 20180508
  4. SEROPRAM (CITALOPRAM HYDROCHLORIDE) [Interacting]
     Active Substance: CITALOPRAM HYDROCHLORIDE
     Indication: Depression
     Dosage: 20 MG, ONCE DAILY ((1-0-0-0) AS OF 14-MAR-2024)
     Route: 065

REACTIONS (2)
  - Electrocardiogram QT prolonged [Recovering/Resolving]
  - Contraindicated product administered [Recovering/Resolving]

NARRATIVE: CASE EVENT DATE: 20180506
